FAERS Safety Report 6673458-5 (Version None)
Quarter: 2010Q2

REPORT INFORMATION
  Report Type: 
  Country: None (occurrence: None)
  Receive Date: 20100408
  Receipt Date: 20100329
  Transmission Date: 20101027
  Serious: Yes (Other)
  Sender: FDA-Public Use
  Company Number: CA-PFIZER INC-2010040866

PATIENT
  Age: 77 Year
  Sex: Female

DRUGS (16)
  1. NORVASC [Suspect]
     Indication: HYPERTENSION
     Dosage: UNK
  2. DETROL LA [Suspect]
  3. GABAPENTIN [Suspect]
     Indication: DIABETIC NEUROPATHY
  4. MURO 128 [Concomitant]
  5. METFORMIN [Concomitant]
  6. CALTRATE PLUS [Concomitant]
  7. PLAVIX [Concomitant]
  8. COVERSYL [Concomitant]
  9. LIPITOR [Concomitant]
  10. METOPROLOL [Concomitant]
  11. OMEPRAZOLE [Concomitant]
  12. QUESTRAN [Concomitant]
  13. XALATAN [Concomitant]
  14. BROMAZEPAM [Concomitant]
  15. TYLENOL-500 [Concomitant]
  16. MORPHINE [Concomitant]

REACTIONS (3)
  - DIZZINESS [None]
  - FALL [None]
  - UPPER LIMB FRACTURE [None]
